FAERS Safety Report 7020445-3 (Version None)
Quarter: 2010Q3

REPORT INFORMATION
  Report Type: 
  Country: None (occurrence: None)
  Receive Date: 20100927
  Receipt Date: 20100915
  Transmission Date: 20110219
  Serious: Yes (Hospitalization)
  Sender: FDA-Public Use
  Company Number: 2010MA002726

PATIENT
  Age: 36 Year
  Sex: Male

DRUGS (2)
  1. ACYCLOVIR [Suspect]
     Indication: VIITH NERVE PARALYSIS
     Dosage: PO
     Route: 048
  2. PREDNISOLONE [Concomitant]

REACTIONS (4)
  - ABDOMINAL PAIN [None]
  - ACIDOSIS [None]
  - INTESTINAL OBSTRUCTION [None]
  - VOMITING [None]
